FAERS Safety Report 10170557 (Version 2)
Quarter: 2014Q2

REPORT INFORMATION
  Report Type: Spontaneous
  Country: US (occurrence: US)
  Receive Date: 20140513
  Receipt Date: 20140513
  Transmission Date: 20141212
  Serious: Yes (Other)
  Sender: FDA-Public Use
  Company Number: PHEH2014US007000

PATIENT
  Age: 32 Year
  Sex: Female
  Weight: 65.7 kg

DRUGS (1)
  1. GILENYA [Suspect]
     Indication: RELAPSING-REMITTING MULTIPLE SCLEROSIS
     Dosage: 0.5 MG, QD
     Route: 048
     Dates: start: 20140404

REACTIONS (5)
  - Nausea [Recovering/Resolving]
  - Fatigue [Recovering/Resolving]
  - Eye pain [Recovering/Resolving]
  - Ocular discomfort [Unknown]
  - Dizziness [Unknown]
